FAERS Safety Report 7099935-3 (Version None)
Quarter: 2010Q4

REPORT INFORMATION
  Report Type: 
  Country: None (occurrence: None)
  Receive Date: 20101112
  Receipt Date: 20101029
  Transmission Date: 20110411
  Serious: Yes (Other)
  Sender: FDA-Public Use
  Company Number: CA-ELI_LILLY_AND_COMPANY-CA201008008899

PATIENT
  Sex: Female

DRUGS (11)
  1. ADCIRCA [Suspect]
     Indication: PULMONARY HYPERTENSION
     Dosage: 40 MG, UNKNOWN
     Route: 048
     Dates: start: 20100713, end: 20100719
  2. ADCIRCA [Suspect]
     Dosage: 20 MG, 2/D
     Route: 048
     Dates: start: 20100719
  3. BOSENTAN [Concomitant]
     Dosage: 125 MG, 2/D
  4. LASIX [Concomitant]
  5. ADVAIR DISKUS 100/50 [Concomitant]
     Dosage: UNK, 2/D
  6. ALDACTONE [Concomitant]
     Dosage: UNK, DAILY (1/D)
  7. DIGOXIN [Concomitant]
     Dosage: UNK, DAILY (1/D)
  8. METOPROLOL [Concomitant]
     Dosage: UNK, 2/D
  9. COUMADIN [Concomitant]
  10. POTASSIUM CHLORIDE [Concomitant]
  11. PANTOLOC /01263202/ [Concomitant]
     Dosage: 40 MG, DAILY (1/D)

REACTIONS (1)
  - ATRIAL FIBRILLATION [None]
